FAERS Safety Report 24239912 (Version 2)
Quarter: 2024Q3

REPORT INFORMATION
  Report Type: Report from Study
  Country: CA (occurrence: CA)
  Receive Date: 20240822
  Receipt Date: 20240924
  Transmission Date: 20241016
  Serious: Yes (Other)
  Sender: TAKEDA
  Company Number: CA-TAKEDA-2023TUS081373

PATIENT
  Age: 57 Year
  Sex: Female

DRUGS (27)
  1. HUMAN IMMUNOGLOBULIN G [Suspect]
     Active Substance: HUMAN IMMUNOGLOBULIN G
     Indication: Primary immunodeficiency syndrome
     Dosage: 12 GRAM, 1/WEEK
     Route: 050
     Dates: start: 20230816
  2. HUMAN IMMUNOGLOBULIN G [Suspect]
     Active Substance: HUMAN IMMUNOGLOBULIN G
     Dosage: 12 GRAM, 1/WEEK
     Route: 050
  3. HUMAN IMMUNOGLOBULIN G [Suspect]
     Active Substance: HUMAN IMMUNOGLOBULIN G
     Dosage: 12 GRAM, 1/WEEK
     Route: 058
     Dates: end: 2024
  4. HUMAN IMMUNOGLOBULIN G [Suspect]
     Active Substance: HUMAN IMMUNOGLOBULIN G
     Dosage: 18 GRAM, QD
     Route: 058
  5. HYQVIA [Suspect]
     Active Substance: HUMAN IMMUNOGLOBULIN G\HYALURONIDASE (HUMAN RECOMBINANT)
     Indication: Immunodeficiency common variable
     Dosage: UNK UNK, Q4WEEKS
     Route: 058
     Dates: start: 20240717
  6. HYQVIA [Suspect]
     Active Substance: HUMAN IMMUNOGLOBULIN G\HYALURONIDASE (HUMAN RECOMBINANT)
     Dosage: 50 GRAM, Q4WEEKS
     Route: 050
  7. HYQVIA [Suspect]
     Active Substance: HUMAN IMMUNOGLOBULIN G\HYALURONIDASE (HUMAN RECOMBINANT)
     Dosage: 50 GRAM, Q4WEEKS
     Route: 050
  8. HYQVIA [Suspect]
     Active Substance: HUMAN IMMUNOGLOBULIN G\HYALURONIDASE (HUMAN RECOMBINANT)
     Dosage: 50 GRAM, Q4WEEKS
     Route: 050
  9. HYQVIA [Suspect]
     Active Substance: HUMAN IMMUNOGLOBULIN G\HYALURONIDASE (HUMAN RECOMBINANT)
     Dosage: 50 GRAM, Q4WEEKS
     Route: 050
  10. HYQVIA [Suspect]
     Active Substance: HUMAN IMMUNOGLOBULIN G\HYALURONIDASE (HUMAN RECOMBINANT)
     Dosage: 50 GRAM, Q4WEEKS
     Route: 050
  11. HYQVIA [Suspect]
     Active Substance: HUMAN IMMUNOGLOBULIN G\HYALURONIDASE (HUMAN RECOMBINANT)
     Dosage: 50 GRAM, Q4WEEKS
     Route: 058
  12. HYQVIA [Suspect]
     Active Substance: HUMAN IMMUNOGLOBULIN G\HYALURONIDASE (HUMAN RECOMBINANT)
     Dosage: 50 GRAM, Q4WEEKS
     Route: 058
  13. CRESTOR [Concomitant]
     Active Substance: ROSUVASTATIN CALCIUM
     Dosage: UNK
     Route: 065
  14. FLEXERIL [Concomitant]
     Active Substance: CYCLOBENZAPRINE HYDROCHLORIDE
     Dosage: UNK
     Route: 065
  15. TRELEGY ELLIPTA [Concomitant]
     Active Substance: FLUTICASONE FUROATE\UMECLIDINIUM BROMIDE\VILANTEROL TRIFENATATE
     Dosage: UNK
     Route: 065
  16. METOPROLOL [Concomitant]
     Active Substance: METOPROLOL
     Dosage: UNK
     Route: 065
  17. FISH OIL [Concomitant]
     Active Substance: FISH OIL
     Dosage: UNK
     Route: 065
  18. VITAMIN C [Concomitant]
     Active Substance: ASCORBIC ACID
     Dosage: UNK
     Route: 065
  19. VITAMIN D [Concomitant]
     Active Substance: VITAMIN D NOS
     Dosage: UNK
     Route: 065
  20. CYCLOBENZAPRINE [Concomitant]
     Active Substance: CYCLOBENZAPRINE
     Dosage: UNK
     Route: 065
  21. FUROSEMIDE [Concomitant]
     Active Substance: FUROSEMIDE
     Dosage: UNK
     Route: 065
  22. VENTOLIN [Concomitant]
     Active Substance: ALBUTEROL SULFATE
     Dosage: UNK
     Route: 065
  23. ZANTAC [Concomitant]
     Active Substance: RANITIDINE HYDROCHLORIDE
     Dosage: UNK
     Route: 065
  24. SPIRIVA [Concomitant]
     Active Substance: TIOTROPIUM BROMIDE MONOHYDRATE
     Dosage: UNK
     Route: 065
  25. LASIX [Concomitant]
     Active Substance: FUROSEMIDE
     Dosage: UNK
     Route: 065
  26. EZETIMIBE [Concomitant]
     Active Substance: EZETIMIBE
     Dosage: UNK
     Route: 065
  27. SINGULAIR [Concomitant]
     Active Substance: MONTELUKAST SODIUM

REACTIONS (22)
  - Malaise [Recovered/Resolved]
  - Blood pressure increased [Unknown]
  - Cough [Unknown]
  - Injection site pain [Recovered/Resolved]
  - Headache [Unknown]
  - Drug intolerance [Not Recovered/Not Resolved]
  - Discomfort [Not Recovered/Not Resolved]
  - Pain [Not Recovered/Not Resolved]
  - Tenderness [Unknown]
  - Gastrointestinal pain [Unknown]
  - Infusion site vesicles [Recovered/Resolved]
  - Hypersomnia [Unknown]
  - Flushing [Unknown]
  - Injection site warmth [Recovered/Resolved]
  - Somnolence [Unknown]
  - Asthma [Unknown]
  - Productive cough [Unknown]
  - Rash [Recovered/Resolved]
  - Pyrexia [Unknown]
  - Infusion site erythema [Unknown]
  - Infusion site pain [Recovering/Resolving]
  - Diarrhoea [Unknown]

NARRATIVE: CASE EVENT DATE: 20230823
